FAERS Safety Report 9587321 (Version 1)
Quarter: 2013Q4

REPORT INFORMATION
  Report Type: Spontaneous
  Country: FR (occurrence: FR)
  Receive Date: 20131003
  Receipt Date: 20131003
  Transmission Date: 20140711
  Serious: Yes (Hospitalization)
  Sender: FDA-Public Use
  Company Number: FR-ASTRAZENECA-2013SE71903

PATIENT
  Age: 11543 Day
  Sex: Male

DRUGS (13)
  1. CRESTOR [Suspect]
     Indication: CARDIOVASCULAR EVENT PROPHYLAXIS
     Route: 048
     Dates: start: 20130827, end: 20130904
  2. DOLIPRANE [Suspect]
     Indication: ANALGESIC THERAPY
     Route: 048
     Dates: start: 20130826, end: 20130827
  3. KARDEGIC [Suspect]
     Indication: ANTIPHOSPHOLIPID SYNDROME
     Route: 048
     Dates: start: 20130822, end: 20130904
  4. AMOXICILLINE [Suspect]
     Indication: LUNG DISORDER
     Route: 048
     Dates: start: 20130819, end: 20130827
  5. HEPARINE SODIQUE PANPHARMA [Suspect]
     Indication: ANTIPHOSPHOLIPID SYNDROME
     Dosage: 25000 IU/ 5 ML
     Route: 042
     Dates: start: 20130822, end: 20130904
  6. TARDYFERON B9 [Suspect]
     Indication: ANAEMIA
     Route: 048
     Dates: start: 20130822, end: 20130826
  7. VENOFER [Suspect]
     Indication: ANAEMIA
     Route: 042
     Dates: start: 20130827, end: 20130827
  8. DAFALGAN CODEINE [Suspect]
     Indication: ANALGESIC THERAPY
     Route: 048
     Dates: start: 20130827, end: 20130831
  9. CONTRAMAL [Suspect]
     Indication: ANALGESIC THERAPY
     Route: 048
     Dates: start: 20130826
  10. TOPALGIC [Suspect]
     Indication: ANALGESIC THERAPY
     Route: 048
     Dates: start: 20130828
  11. COUMADINE [Suspect]
     Indication: ANTIPHOSPHOLIPID SYNDROME
     Route: 048
     Dates: start: 20130826, end: 20130828
  12. PREVISCAN [Concomitant]
     Dates: start: 2009, end: 201006
  13. PREVISCAN [Concomitant]
     Dates: end: 201308

REACTIONS (2)
  - Pulmonary embolism [Unknown]
  - Rash maculo-papular [Recovered/Resolved]
